FAERS Safety Report 8538685-0 (Version None)
Quarter: 2012Q3

REPORT INFORMATION
  Report Type: 
  Country: None (occurrence: None)
  Receive Date: 20120726
  Receipt Date: 20120716
  Transmission Date: 20120928
  Serious: Yes (Hospitalization)
  Sender: FDA-Public Use
  Company Number: US-BAYER-2012-014320

PATIENT
  Age: 46 Year
  Sex: Female
  Weight: 56.689 kg

DRUGS (5)
  1. YAZ [Suspect]
     Dosage: UNK
     Dates: start: 20080806, end: 20090501
  2. ZYRTEC [Concomitant]
     Indication: SEASONAL ALLERGY
     Dosage: 1 TABLET
     Route: 048
     Dates: start: 19960101
  3. NAPROXEN [Concomitant]
     Indication: MUSCLE RELAXANT THERAPY
     Dosage: 500 MG, UNK
     Route: 048
  4. FLONASE [Concomitant]
     Indication: MULTIPLE ALLERGIES
  5. IBUPROFEN [Concomitant]
     Indication: PAIN
     Dosage: 400 MG, UNK
     Route: 048

REACTIONS (4)
  - INJURY [None]
  - CHOLECYSTITIS CHRONIC [None]
  - CHOLELITHIASIS [None]
  - PAIN [None]
